FAERS Safety Report 15493924 (Version 2)
Quarter: 2018Q4

REPORT INFORMATION
  Report Type: Spontaneous
  Country: JP (occurrence: JP)
  Receive Date: 20181012
  Receipt Date: 20181012
  Transmission Date: 20190205
  Serious: Yes (Hospitalization)
  Sender: FDA-Public Use
  Company Number: JP-TEVA-2018-JP-001202J

PATIENT
  Age: 69 Year
  Sex: Female

DRUGS (1)
  1. PRINK INJECTION 10 MICROGRAM [Suspect]
     Active Substance: ALPROSTADIL
     Indication: PRODUCT USED FOR UNKNOWN INDICATION
     Route: 065
     Dates: start: 201607, end: 201607

REACTIONS (1)
  - Rash maculo-papular [Unknown]
